FAERS Safety Report 14278521 (Version 1)
Quarter: 2017Q4

REPORT INFORMATION
  Report Type: Spontaneous
  Country: US (occurrence: US)
  Receive Date: 20171211
  Receipt Date: 20171211
  Transmission Date: 20180321
  Serious: Yes (Hospitalization)
  Sender: FDA-Public Use
  Company Number: US-OTSUKA-DJ201501376

PATIENT

DRUGS (1)
  1. ABILIFY [Suspect]
     Active Substance: ARIPIPRAZOLE
     Indication: PRODUCT USED FOR UNKNOWN INDICATION
     Route: 048

REACTIONS (13)
  - Aggression [Unknown]
  - Depression [Unknown]
  - Insomnia [Unknown]
  - Ligament sprain [Unknown]
  - Panic attack [Unknown]
  - Irritability [Unknown]
  - Abnormal behaviour [Unknown]
  - Agitation [Unknown]
  - Impulsive behaviour [Unknown]
  - Mania [Unknown]
  - Suicidal ideation [Unknown]
  - Anxiety [Unknown]
  - Viral infection [Unknown]
